FAERS Safety Report 16780889 (Version 1)
Quarter: 2019Q3

REPORT INFORMATION
  Report Type: Spontaneous
  Country: US (occurrence: US)
  Receive Date: 20190906
  Receipt Date: 20190906
  Transmission Date: 20191005
  Serious: Yes (Other)
  Sender: FDA-Public Use
  Company Number: US-PFIZER INC-2019387306

PATIENT
  Sex: Female

DRUGS (25)
  1. LISINOPRIL. [Concomitant]
     Active Substance: LISINOPRIL
     Indication: HYPERTENSION
     Dosage: UNK
  2. VITAMIN D3 [Concomitant]
     Active Substance: CHOLECALCIFEROL
     Dosage: UNK
  3. FUROSEMIDE. [Concomitant]
     Active Substance: FUROSEMIDE
     Indication: URINARY RETENTION
     Dosage: UNK
  4. NEXIUM [Suspect]
     Active Substance: ESOMEPRAZOLE MAGNESIUM
     Indication: DYSPEPSIA
     Dosage: UNK
     Route: 048
  5. PREVACID [Suspect]
     Active Substance: LANSOPRAZOLE
     Indication: DYSPEPSIA
     Dosage: UNK
     Route: 048
     Dates: start: 2012, end: 2018
  6. OMEPRAZOLE AND SODIUM BICARBONATE [Suspect]
     Active Substance: OMEPRAZOLE\SODIUM BICARBONATE
     Indication: DYSPEPSIA
     Dosage: UNK
     Route: 048
     Dates: start: 2012, end: 2018
  7. VITAMIN E [Concomitant]
     Active Substance: .ALPHA.-TOCOPHEROL
     Dosage: UNK
  8. LEVOTHYROXINE. [Concomitant]
     Active Substance: LEVOTHYROXINE
     Indication: THYROID DISORDER
     Dosage: UNK
  9. TRAMADOL. [Concomitant]
     Active Substance: TRAMADOL
     Indication: OSTEOARTHRITIS
     Dosage: UNK
  10. RANITIDINE. [Concomitant]
     Active Substance: RANITIDINE
     Dosage: UNK
  11. CELEBREX [Concomitant]
     Active Substance: CELECOXIB
     Dosage: UNK
  12. CARVEDILOL. [Concomitant]
     Active Substance: CARVEDILOL
     Indication: HYPERTENSION
     Dosage: UNK
  13. BUSPIRONE [Concomitant]
     Active Substance: BUSPIRONE HYDROCHLORIDE
     Indication: SLEEP DISORDER
     Dosage: UNK
  14. ASPIRIN (E.C.) [Concomitant]
     Active Substance: ASPIRIN
     Indication: CARDIAC DISORDER
     Dosage: UNK
  15. PRILOSEC [Suspect]
     Active Substance: OMEPRAZOLE MAGNESIUM
     Indication: DYSPEPSIA
     Dosage: UNK
     Route: 048
     Dates: start: 2012, end: 2018
  16. AMLODIPINE [Concomitant]
     Active Substance: AMLODIPINE BESYLATE
     Indication: GOUT
     Dosage: UNK
  17. METOLAZONE. [Concomitant]
     Active Substance: METOLAZONE
     Dosage: UNK
  18. ESTRADIOL. [Concomitant]
     Active Substance: ESTRADIOL
     Dosage: UNK
  19. ZANTAC [Concomitant]
     Active Substance: RANITIDINE HYDROCHLORIDE
     Dosage: UNK
  20. PROTONIX [Suspect]
     Active Substance: PANTOPRAZOLE SODIUM
     Indication: DYSPEPSIA
     Dosage: UNK
     Route: 048
  21. DEXILANT [Suspect]
     Active Substance: DEXLANSOPRAZOLE
     Indication: ABDOMINAL DISCOMFORT
     Dosage: UNK
     Route: 048
  22. PANTOPRAZOLE [Suspect]
     Active Substance: PANTOPRAZOLE
     Dosage: UNK
     Route: 048
     Dates: start: 2015, end: 2017
  23. ROPINIROLE. [Concomitant]
     Active Substance: ROPINIROLE
     Indication: RESTLESS LEGS SYNDROME
     Dosage: UNK
  24. PEPCID [ALUMINIUM HYDROXIDE GEL, DRIED;MAGNESIUM CARBONATE] [Concomitant]
     Active Substance: ALUMINUM HYDROXIDE\MAGNESIUM CARBONATE
     Dosage: UNK
  25. ALLOPURINOL. [Concomitant]
     Active Substance: ALLOPURINOL
     Indication: HYPERTENSION
     Dosage: UNK

REACTIONS (3)
  - Chronic kidney disease [Not Recovered/Not Resolved]
  - Rebound acid hypersecretion [Unknown]
  - Renal failure [Unknown]
